FAERS Safety Report 22607108 (Version 2)
Quarter: 2023Q2

REPORT INFORMATION
  Report Type: Spontaneous
  Country: GB (occurrence: GB)
  Receive Date: 20230615
  Receipt Date: 20230623
  Transmission Date: 20230722
  Serious: Yes (Disabling, Other)
  Sender: FDA-Public Use
  Company Number: GB-MHRA-MED-202306041555496830-NVDHW

PATIENT
  Age: 1 Month
  Sex: Male

DRUGS (1)
  1. VABYSMO [Suspect]
     Active Substance: FARICIMAB-SVOA
     Indication: Product used for unknown indication
     Route: 065

REACTIONS (5)
  - Sight disability [Not Recovered/Not Resolved]
  - Eye pain [Recovering/Resolving]
  - Photopsia [Not Recovered/Not Resolved]
  - Vision blurred [Unknown]
  - Blindness [Unknown]
